FAERS Safety Report 21681211 (Version 1)
Quarter: 2022Q4

REPORT INFORMATION
  Report Type: Spontaneous
  Country: IN (occurrence: IN)
  Receive Date: 20221205
  Receipt Date: 20221205
  Transmission Date: 20230113
  Serious: Yes (Other)
  Sender: FDA-Public Use
  Company Number: IN-LUPIN LIMITED-2022-14046

PATIENT
  Age: 3 Month
  Sex: Male

DRUGS (9)
  1. LEVETIRACETAM [Suspect]
     Active Substance: LEVETIRACETAM
     Indication: Seizure
     Dosage: 40 MILLIGRAM/KILOGRAM, QD (INCREASED DOSE)
     Route: 048
  2. VALPROATE SODIUM [Suspect]
     Active Substance: VALPROATE SODIUM
     Indication: Seizure
     Dosage: 60 MILLIGRAM/KILOGRAM, QD (TITRATED DOSE)
     Route: 048
  3. CLOBAZAM [Suspect]
     Active Substance: CLOBAZAM
     Indication: Seizure
     Dosage: 1 MILLIGRAM/KILOGRAM, QD (INCREASED DOSE)
     Route: 048
  4. TOPIRAMATE [Suspect]
     Active Substance: TOPIRAMATE
     Indication: Seizure
     Dosage: 8 MILLIGRAM/KILOGRAM
     Route: 065
  5. VIGABATRIN [Suspect]
     Active Substance: VIGABATRIN
     Indication: Seizure
     Dosage: 150 MILLIGRAM/KILOGRAM, QD (FOR 2 WEEKS)
     Route: 048
  6. PREDNISOLONE [Suspect]
     Active Substance: PREDNISOLONE
     Indication: Seizure
     Dosage: 2 MILLIGRAM/KILOGRAM, QD (FOR 2 WEEKS)
     Route: 048
  7. ARGININE [Concomitant]
     Active Substance: ARGININE
     Indication: Inborn error of metabolism
     Dosage: UNK
     Route: 065
  8. CARNITINE [Concomitant]
     Active Substance: CARNITINE
     Indication: Inborn error of metabolism
     Dosage: UNK
     Route: 065
  9. SODIUM BENZOATE [Concomitant]
     Active Substance: SODIUM BENZOATE
     Indication: Inborn error of metabolism
     Dosage: UNK
     Route: 048

REACTIONS (1)
  - Drug ineffective [Unknown]
